FAERS Safety Report 17391791 (Version 1)
Quarter: 2020Q1

REPORT INFORMATION
  Report Type: Spontaneous
  Country: DE (occurrence: DE)
  Receive Date: 20200207
  Receipt Date: 20200207
  Transmission Date: 20200409
  Serious: Yes (Other)
  Sender: FDA-Public Use
  Company Number: DE-MYLANLABS-2020M1013606

PATIENT
  Age: 31 Year
  Sex: Male
  Weight: 110 kg

DRUGS (10)
  1. VENLAFAXINE [Suspect]
     Active Substance: VENLAFAXINE HYDROCHLORIDE
     Indication: PRODUCT USED FOR UNKNOWN INDICATION
     Dosage: 150 MILLIGRAM
  2. DOXEPIN [Concomitant]
     Active Substance: DOXEPIN
     Dosage: UNK
  3. RISPERIDONE. [Concomitant]
     Active Substance: RISPERIDONE
     Dosage: UNK
  4. LITHIOFOR [Suspect]
     Active Substance: LITHIUM SULFATE
     Indication: SCHIZOAFFECTIVE DISORDER
     Dosage: 900 MILLIGRAM
  5. DIPIPERON [Concomitant]
     Active Substance: PIPAMPERONE
     Dosage: UNK
  6. ARIPIPRAZOLE. [Concomitant]
     Active Substance: ARIPIPRAZOLE
     Dosage: UNK
  7. AMISULPRIDE [Concomitant]
     Active Substance: AMISULPRIDE
     Dosage: UNK
  8. MIRTAZAPINE. [Concomitant]
     Active Substance: MIRTAZAPINE
     Dosage: UNK
  9. OLANZAPINE. [Concomitant]
     Active Substance: OLANZAPINE
     Dosage: UNK
  10. CLOZAPINE. [Suspect]
     Active Substance: CLOZAPINE
     Indication: SCHIZOAFFECTIVE DISORDER
     Dosage: 100 MILLIGRAM

REACTIONS (2)
  - Product use in unapproved indication [Unknown]
  - Cardiomyopathy [Unknown]
